FAERS Safety Report 5409859-2 (Version None)
Quarter: 2007Q3

REPORT INFORMATION
  Report Type: 
  Country: None (occurrence: None)
  Receive Date: 20070807
  Receipt Date: 20070725
  Transmission Date: 20080115
  Serious: Yes (Hospitalization)
  Sender: FDA-Public Use
  Company Number: 02100-JPN-07-0298

PATIENT
  Age: 76 Year
  Sex: Male

DRUGS (17)
  1. CILOSTAZOL [Suspect]
     Indication: ARTERIOSCLEROSIS OBLITERANS
     Dosage: 200 MG/50 MG, ORAL
     Route: 048
     Dates: start: 20070116, end: 20070616
  2. ASPIRIN [Suspect]
     Dosage: 100 MG, ORAL
     Route: 048
     Dates: start: 20070427, end: 20070608
  3. RANITIDINE HYDROCHLORIDE [Suspect]
     Dosage: 150 MG, ORAL
     Route: 048
     Dates: start: 20070427, end: 20070608
  4. PILSICAINIDE HYDROCHLORIDE [Concomitant]
  5. MEXILETINE HYDROCHLORIDE [Concomitant]
  6. ATORVASTATIN CALCIUM [Concomitant]
  7. NICORANDIL [Concomitant]
  8. TEPRENONE [Concomitant]
  9. ATENOLOL [Concomitant]
  10. BEPRIDIL HYDROCHLORIDE [Concomitant]
  11. CROTAMITON [Concomitant]
  12. BETAMETHASONE VALERATE GENTAMICIN [Concomitant]
  13. MAGNESIUM OXIDE [Concomitant]
  14. COLIBACILLUS VACCINE HYDROCORTISONE [Concomitant]
  15. WARFARIN POTASSIUM [Concomitant]
  16. BROTIZOLAM [Concomitant]
  17. AMBROXOL HYDROCHLORIDE [Concomitant]

REACTIONS (9)
  - AGRANULOCYTOSIS [None]
  - CARDIAC FAILURE [None]
  - CORONARY ARTERY OCCLUSION [None]
  - LYMPHOCYTE STIMULATION TEST POSITIVE [None]
  - MYOCARDIAL INFARCTION [None]
  - PLEURAL EFFUSION [None]
  - PULMONARY OEDEMA [None]
  - SUBDURAL HAEMATOMA [None]
  - WHITE BLOOD CELL COUNT DECREASED [None]
